FAERS Safety Report 10732593 (Version 2)
Quarter: 2015Q1

REPORT INFORMATION
  Report Type: Spontaneous
  Country: CN (occurrence: CN)
  Receive Date: 20150123
  Receipt Date: 20150209
  Transmission Date: 20150721
  Serious: Yes (Other)
  Sender: FDA-Public Use
  Company Number: CN-ELI_LILLY_AND_COMPANY-CN201501006941

PATIENT
  Age: 42 Year
  Sex: Male
  Weight: 56.9 kg

DRUGS (4)
  1. ALIMTA [Suspect]
     Active Substance: PEMETREXED DISODIUM
     Indication: LUNG CANCER METASTATIC
     Dosage: 1500 MG/M2, CYCLICAL
     Route: 065
  2. MECOBALAMIN [Concomitant]
     Active Substance: METHYLCOBALAMIN
     Indication: PREMEDICATION
     Dosage: 0.5 MG, QD
     Route: 030
  3. FOLIC ACID. [Concomitant]
     Active Substance: FOLIC ACID
     Indication: PREMEDICATION
     Dosage: 5 MG, QD
     Route: 048
  4. CISPLATIN. [Suspect]
     Active Substance: CISPLATIN
     Indication: LUNG CANCER METASTATIC
     Dosage: 20 MG/M2, CYCLICAL
     Route: 065

REACTIONS (11)
  - Malignant neoplasm progression [Unknown]
  - Abdominal distension [Recovered/Resolved]
  - Diarrhoea [Recovered/Resolved]
  - Chest discomfort [Unknown]
  - Nausea [Unknown]
  - Back pain [Unknown]
  - Nausea [Recovered/Resolved]
  - Cough [Recovered/Resolved]
  - Pleural effusion [Unknown]
  - Pericardial effusion [Unknown]
  - Thrombocytopenia [Recovered/Resolved]
